FAERS Safety Report 21374683 (Version 1)
Quarter: 2022Q3

REPORT INFORMATION
  Report Type: Spontaneous
  Country: US (occurrence: US)
  Receive Date: 20220926
  Receipt Date: 20220926
  Transmission Date: 20221027
  Serious: No
  Sender: FDA-Public Use
  Company Number: US-ALLERGAN-2132557US

PATIENT
  Sex: Male

DRUGS (1)
  1. LEXAPRO [Suspect]
     Active Substance: ESCITALOPRAM OXALATE
     Indication: Product used for unknown indication
     Dosage: UNK

REACTIONS (6)
  - Head discomfort [Unknown]
  - Hyperaesthesia [Unknown]
  - Syncope [Unknown]
  - Headache [Unknown]
  - Visual impairment [Unknown]
  - Paraesthesia [Unknown]
